FAERS Safety Report 18756663 (Version 3)
Quarter: 2021Q3

REPORT INFORMATION
  Report Type: Report from Study
  Country: US (occurrence: US)
  Receive Date: 20210119
  Receipt Date: 20210910
  Transmission Date: 20211014
  Serious: Yes (Life-Threatening, Hospitalization)
  Sender: FDA-Public Use
  Company Number: US-EXELIXIS-CABO-21036538

PATIENT
  Age: 80 Year
  Sex: Male

DRUGS (12)
  1. TRIAMCINOLONE [Concomitant]
     Active Substance: TRIAMCINOLONE
     Dosage: UNK
  2. TAMSULOSIN [Concomitant]
     Active Substance: TAMSULOSIN
     Dosage: UNK
  3. FUROSEMIDE. [Concomitant]
     Active Substance: FUROSEMIDE
     Dosage: UNK
  4. TRAMADOL HCL [Concomitant]
     Active Substance: TRAMADOL HYDROCHLORIDE
     Dosage: UNK
  5. BENZONATATE. [Concomitant]
     Active Substance: BENZONATATE
     Dosage: UNK
  6. AMLODIPINE [Concomitant]
     Active Substance: AMLODIPINE BESYLATE
     Dosage: UNK
  7. SENNA [Concomitant]
     Active Substance: SENNA LEAF\SENNOSIDES\SENNOSIDES A AND B
     Dosage: UNK
  8. CABOMETYX [Suspect]
     Active Substance: CABOZANTINIB S-MALATE
     Indication: RENAL CELL CARCINOMA
     Dosage: 40 MG, QD
     Route: 048
     Dates: start: 20201222, end: 20210118
  9. GLUCOSAMINE + CHONDROITIN WITH MSM [Concomitant]
     Dosage: UNK
  10. PANTOPRAZOLE [Concomitant]
     Active Substance: PANTOPRAZOLE
     Dosage: UNK
  11. CABOMETYX [Suspect]
     Active Substance: CABOZANTINIB S-MALATE
     Dosage: 40 MG, QD
     Route: 048
     Dates: start: 20210128
  12. LYSINE [Concomitant]
     Active Substance: LYSINE
     Dosage: UNK

REACTIONS (6)
  - Blood pressure diastolic increased [Not Recovered/Not Resolved]
  - Pneumothorax [Not Recovered/Not Resolved]
  - Dry skin [Not Recovered/Not Resolved]
  - COVID-19 [Unknown]
  - Rhinorrhoea [Unknown]
  - Diarrhoea [Not Recovered/Not Resolved]

NARRATIVE: CASE EVENT DATE: 20210115
